FAERS Safety Report 8794180 (Version 2)
Quarter: 2015Q3

REPORT INFORMATION
  Report Type: Spontaneous
  Country: US (occurrence: US)
  Receive Date: 20120918
  Receipt Date: 20150717
  Transmission Date: 20151125
  Serious: Yes (Death, Other)
  Sender: FDA-Public Use
  Company Number: US-SANOFI-AVENTIS-2012SA068078

PATIENT
  Sex: Female

DRUGS (2)
  1. ASPIRIN. [Concomitant]
     Active Substance: ASPIRIN
  2. PLAVIX [Suspect]
     Active Substance: CLOPIDOGREL BISULFATE
     Indication: STENT PLACEMENT
     Route: 065
     Dates: start: 2004, end: 20061117

REACTIONS (5)
  - Epistaxis [Unknown]
  - Thrombotic thrombocytopenic purpura [Unknown]
  - Death [Fatal]
  - Cerebral haemorrhage [Unknown]
  - Haemorrhage [Unknown]
